FAERS Safety Report 12869464 (Version 3)
Quarter: 2018Q1

REPORT INFORMATION
  Report Type: Report from Study
  Country: US (occurrence: US)
  Receive Date: 20161020
  Receipt Date: 20180105
  Transmission Date: 20180508
  Serious: No
  Sender: FDA-Public Use
  Company Number: US-AMGEN-USASL2016110362

PATIENT
  Age: 73 Year
  Sex: Female

DRUGS (1)
  1. REPATHA [Suspect]
     Active Substance: EVOLOCUMAB
     Indication: BLOOD CHOLESTEROL INCREASED
     Dosage: 140 MG, Q2WK
     Route: 065

REACTIONS (6)
  - Injection site bruising [Unknown]
  - Frustration tolerance decreased [Unknown]
  - Injection site discolouration [Unknown]
  - Underdose [Unknown]
  - Injection site swelling [Unknown]
  - Visual impairment [Unknown]

NARRATIVE: CASE EVENT DATE: 20160822
